FAERS Safety Report 8538988-X (Version None)
Quarter: 2012Q3

REPORT INFORMATION
  Report Type: 
  Country: None (occurrence: None)
  Receive Date: 20120726
  Receipt Date: 20120723
  Transmission Date: 20120928
  Serious: Yes (Hospitalization)
  Sender: FDA-Public Use
  Company Number: PHHY2012DE063434

PATIENT
  Sex: Female

DRUGS (2)
  1. LEXOTANIL [Concomitant]
     Indication: EPILEPSY
     Route: 048
  2. CARBAMAZEPINE [Suspect]
     Indication: EPILEPSY
     Route: 048

REACTIONS (3)
  - URINE SODIUM INCREASED [None]
  - RASH PAPULAR [None]
  - HYPERTENSION [None]
